FAERS Safety Report 9037707 (Version 2)
Quarter: 2013Q1

REPORT INFORMATION
  Report Type: Report from Study
  Country: US (occurrence: US)
  Receive Date: 20130129
  Receipt Date: 20130129
  Transmission Date: 20140127
  Serious: Yes (Hospitalization)
  Sender: FDA-Public Use
  Company Number: US-JNJFOC-20130112588

PATIENT
  Age: 17 Year
  Sex: Male
  Weight: 68 kg

DRUGS (8)
  1. REMICADE [Suspect]
     Indication: INFLAMMATORY BOWEL DISEASE
     Route: 042
     Dates: start: 20091111, end: 20120628
  2. METHOTREXATE [Concomitant]
  3. TRAZADOL [Concomitant]
  4. LEVSIN [Concomitant]
  5. FOLIC ACID [Concomitant]
  6. ZOLOFT [Concomitant]
  7. RANITIDINE [Concomitant]
  8. ANTIBIOTIC [Concomitant]
     Indication: EAR INFECTION

REACTIONS (1)
  - Infectious mononucleosis [Recovered/Resolved]
